FAERS Safety Report 5493918-2 (Version None)
Quarter: 2007Q4

REPORT INFORMATION
  Report Type: 
  Country: None (occurrence: None)
  Receive Date: 20071023
  Receipt Date: 20071018
  Transmission Date: 20080405
  Serious: Yes (Other)
  Sender: FDA-Public Use
  Company Number: ES-MERCK-0709ESP00018

PATIENT
  Age: 46 Year
  Sex: Male

DRUGS (4)
  1. SINGULAIR [Suspect]
     Indication: ASTHMA
     Route: 048
     Dates: start: 20070226, end: 20070628
  2. ALBUTEROL SULFATE [Suspect]
     Dates: start: 20010101
  3. FLUTICASONE PROPIONATE AND SALMETEROL XINAFOATE [Suspect]
     Dates: start: 20040101
  4. BUDESONIDE [Suspect]
     Dates: start: 20010101

REACTIONS (3)
  - ANAESTHESIA [None]
  - MUSCULOSKELETAL PAIN [None]
  - PARAESTHESIA [None]
